FAERS Safety Report 4726522-1 (Version None)
Quarter: 2005Q3

REPORT INFORMATION
  Report Type: 
  Country: None (occurrence: None)
  Receive Date: 20050726
  Receipt Date: 20050720
  Transmission Date: 20060218
  Serious: Yes (Other)
  Sender: FDA-Public Use
  Company Number: 2005104407

PATIENT
  Sex: Female

DRUGS (1)
  1. DOSTINEX [Suspect]
     Indication: ADENOMA BENIGN
     Dosage: 0.25 MG (0.5 MG, SINGLE INTERVAL: WEEKLY), ORAL
     Route: 048
     Dates: start: 20040601

REACTIONS (1)
  - PLATELET COUNT DECREASED [None]
